FAERS Safety Report 7068259 (Version 2)
Quarter: 2014Q3

REPORT INFORMATION
  Report Type: Spontaneous
  Country: US (occurrence: None)
  Receive Date: 20090724
  Receipt Date: 20140904
  Transmission Date: 20150326
  Serious: Yes (Hospitalization, Other)
  Sender: FDA-Public Use
  Company Number: 2009S1005694

PATIENT
  Age: 69 Year
  Sex: Male

DRUGS (12)
  1. COUMADIN [Concomitant]
     Active Substance: WARFARIN SODIUM
  2. ASPIRIN. [Concomitant]
     Active Substance: ASPIRIN
  3. PHOSPHO-SODA [Suspect]
     Active Substance: SODIUM PHOSPHATE, DIBASIC\SODIUM PHOSPHATE, MONOBASIC
     Indication: COLONOSCOPY
     Dates: start: 2008
  4. CARDIZEM [Concomitant]
     Active Substance: DILTIAZEM HYDROCHLORIDE
  5. PERSANTINE (DIPYRIDAMOLE) [Concomitant]
  6. LASIX [Concomitant]
     Active Substance: FUROSEMIDE
  7. LISINOPRIL. [Concomitant]
     Active Substance: LISINOPRIL
  8. LANOXIN [Concomitant]
     Active Substance: DIGOXIN
  9. COREG [Concomitant]
     Active Substance: CARVEDILOL
  10. FLEET [Suspect]
     Active Substance: BISACODYL\GLYCERIN\MINERAL OIL\SODIUM PHOSPHATE, DIBASIC\SODIUM PHOSPHATE, MONOBASIC
     Indication: CONSTIPATION
     Dosage: RECTAL
     Route: 054
  11. GEMFIBROZIL. [Concomitant]
     Active Substance: GEMFIBROZIL
  12. ISORDIL (ISOSORBIDE DINITRATE) [Concomitant]

REACTIONS (14)
  - Cardiac failure congestive [None]
  - Condition aggravated [None]
  - Hiatus hernia [None]
  - Chronic obstructive pulmonary disease [None]
  - Pleural effusion [None]
  - Ecchymosis [None]
  - Urinary tract infection [None]
  - Renal failure chronic [None]
  - Hypertension [None]
  - Oesophageal ulcer [None]
  - Renal impairment [None]
  - Anaemia [None]
  - Constipation [None]
  - Oesophagitis [None]
